FAERS Safety Report 21452925 (Version 2)
Quarter: 2022Q4

REPORT INFORMATION
  Report Type: Other
  Country: JP (occurrence: JP)
  Receive Date: 20221013
  Receipt Date: 20221206
  Transmission Date: 20230113
  Serious: Yes (Hospitalization)
  Sender: FDA-Public Use
  Company Number: JP-CHUGAI-2022018772

PATIENT
  Age: 5 Year
  Sex: Male
  Weight: 21.5 kg

DRUGS (2)
  1. EMICIZUMAB [Suspect]
     Active Substance: EMICIZUMAB
     Indication: Haemophilia A without inhibitors
     Dosage: 3 MILLIGRAM/KILOGRAM, ONCE/2WEEKS
     Route: 058
     Dates: start: 20190311
  2. EMICIZUMAB [Suspect]
     Active Substance: EMICIZUMAB
     Route: 058
     Dates: start: 20171023

REACTIONS (3)
  - Retroperitoneal haematoma [Recovered/Resolved]
  - Retroperitoneal haemorrhage [Not Recovered/Not Resolved]
  - Muscle haemorrhage [Unknown]

NARRATIVE: CASE EVENT DATE: 20220414
